FAERS Safety Report 14575779 (Version 1)
Quarter: 2018Q1

REPORT INFORMATION
  Report Type: Report from Study
  Country: ES (occurrence: ES)
  Receive Date: 20180227
  Receipt Date: 20180227
  Transmission Date: 20180509
  Serious: Yes (Hospitalization)
  Sender: FDA-Public Use
  Company Number: ES-ROCHE-2054369

PATIENT
  Age: 62 Year
  Sex: Male
  Weight: 82.6 kg

DRUGS (16)
  1. CAPOTEN (SPAIN) [Concomitant]
     Indication: HYPERTENSION
  2. PARACETAMOL [Concomitant]
     Active Substance: ACETAMINOPHEN
     Indication: PAIN
     Route: 065
     Dates: start: 20171226, end: 20171229
  3. NIFEDIPINO [Concomitant]
     Indication: HYPERTENSION
     Route: 065
     Dates: start: 20170824
  4. ATEZOLIZUMAB. [Suspect]
     Active Substance: ATEZOLIZUMAB
     Indication: NON-SMALL CELL LUNG CANCER STAGE IV
     Dosage: DATE OF MOST RECENT DOSE PRIOR TO SAE: 15 DEC 2017
     Route: 042
     Dates: start: 20161125
  5. ENOXAPARINA [Concomitant]
     Active Substance: ENOXAPARIN
     Indication: PROPHYLAXIS
     Route: 065
     Dates: start: 20171227, end: 20171229
  6. MEGESTROL [Concomitant]
     Active Substance: MEGESTROL
     Indication: DECREASED APPETITE
     Route: 065
     Dates: start: 20161018
  7. FENTANILO [Concomitant]
     Active Substance: FENTANYL
     Indication: PAIN IN EXTREMITY
     Route: 065
     Dates: start: 20170120
  8. BEVACIZUMAB. [Suspect]
     Active Substance: BEVACIZUMAB
     Indication: NON-SMALL CELL LUNG CANCER STAGE IV
     Dosage: DOSE OF LAST BEVACIZUMAB ADMINISTERED: 1215 MG?DATE OF MOST RECENT DOSE PRIOR TO SAE: 15 DEC 2017
     Route: 042
     Dates: start: 20161125
  9. ACETYLCYSTEINE. [Concomitant]
     Active Substance: ACETYLCYSTEINE
     Indication: PNEUMONIA
     Route: 065
     Dates: start: 20170510, end: 2017
  10. AMITRIPTILINA [Concomitant]
     Active Substance: AMITRIPTYLINE HYDROCHLORIDE
     Indication: PAIN IN EXTREMITY
     Route: 065
     Dates: start: 20171013
  11. HIDROCLOROTIAZIDA [Concomitant]
     Active Substance: HYDROCHLOROTHIAZIDE
     Indication: HYPERTENSION
     Route: 065
     Dates: start: 20171229
  12. OMEPRAZOLE. [Concomitant]
     Active Substance: OMEPRAZOLE
     Route: 065
     Dates: start: 20171229
  13. METRONIDAZOL [Concomitant]
     Active Substance: METRONIDAZOLE
     Indication: PROPHYLAXIS
     Route: 065
     Dates: start: 20171227, end: 20171229
  14. LEVOMEPROMAZINA [Concomitant]
     Active Substance: LEVOMEPROMAZINE MALEATE
     Route: 065
     Dates: start: 20171215
  15. CARBOPLATIN. [Suspect]
     Active Substance: CARBOPLATIN
     Indication: NON-SMALL CELL LUNG CANCER STAGE IV
     Dosage: AT AREA UNDER THE CONCENTRATION-TIME CURVE (AUC) 6 MILLIGRAMS PER MILLILITER PER MINUTE (MG/ML/MIN)
     Route: 042
     Dates: start: 20161125
  16. PACLITAXEL. [Suspect]
     Active Substance: PACLITAXEL
     Indication: NON-SMALL CELL LUNG CANCER STAGE IV
     Dosage: DOSE OF LAST PACLITAXEL ADMINISTERED: 380 MG?DATE OF MOST RECENT DOSE PRIOR TO SAE: 03 FEB 2017
     Route: 042
     Dates: start: 20161125

REACTIONS (1)
  - Infectious colitis [Recovered/Resolved]

NARRATIVE: CASE EVENT DATE: 20171226
